FAERS Safety Report 6301683-1 (Version None)
Quarter: 2009Q3

REPORT INFORMATION
  Report Type: 
  Country: None (occurrence: None)
  Receive Date: 20090807
  Receipt Date: 20090729
  Transmission Date: 20100115
  Serious: Yes (Other)
  Sender: FDA-Public Use
  Company Number: PHNU2007DE01982

PATIENT
  Sex: Male
  Weight: 90 kg

DRUGS (1)
  1. LAMISIL [Suspect]
     Indication: FUNGAL INFECTION
     Dosage: 250 MG/DAY
     Route: 048
     Dates: start: 20060101, end: 20060101

REACTIONS (1)
  - HYPOAESTHESIA [None]
